FAERS Safety Report 9586448 (Version 1)
Quarter: 2013Q4

REPORT INFORMATION
  Report Type: Spontaneous
  Country: US (occurrence: None)
  Receive Date: 20131001
  Receipt Date: 20131001
  Transmission Date: 20140711
  Serious: Yes (Hospitalization)
  Sender: FDA-Public Use
  Company Number: UTC-038247

PATIENT
  Age: 57 Year
  Sex: Female
  Weight: 86.4 kg

DRUGS (2)
  1. REMODULIN (2.5 MILLIGRAM/MILLILITERS, INJECTION FOR INFUSION) (TREPROSTINIL SODIUM) [Suspect]
     Indication: COR PULMONALE CHRONIC
     Dates: start: 20130801
  2. ADCIRCA (TADALAFIL) [Concomitant]

REACTIONS (3)
  - Abdominal abscess [None]
  - Infusion site abscess [None]
  - Infusion site infection [None]
